FAERS Safety Report 8305549-7 (Version None)
Quarter: 2012Q2

REPORT INFORMATION
  Report Type: 
  Country: None (occurrence: None)
  Receive Date: 20120423
  Receipt Date: 20120418
  Transmission Date: 20120825
  Serious: Yes (Hospitalization)
  Sender: FDA-Public Use
  Company Number: FR-MERCK-1007FRA00064

PATIENT
  Age: 47 Year
  Sex: Male

DRUGS (4)
  1. FLUCONAZOLE [Suspect]
     Indication: ENTEROCOCCAL SEPSIS
     Route: 065
     Dates: start: 20080101, end: 20080117
  2. TOBRAMYCIN SULFATE [Suspect]
     Indication: ENTEROCOCCAL SEPSIS
     Route: 065
     Dates: start: 20080101, end: 20080206
  3. LINEZOLID [Suspect]
     Indication: ENTEROCOCCAL SEPSIS
     Route: 065
     Dates: start: 20080101, end: 20080128
  4. PRIMAXIN [Suspect]
     Indication: ENTEROCOCCAL SEPSIS
     Route: 042
     Dates: start: 20080101, end: 20080128

REACTIONS (1)
  - JAUNDICE CHOLESTATIC [None]
